FAERS Safety Report 8175025-3 (Version None)
Quarter: 2012Q1

REPORT INFORMATION
  Report Type: 
  Country: None (occurrence: None)
  Receive Date: 20120229
  Receipt Date: 20120221
  Transmission Date: 20120608
  Serious: Yes (Hospitalization)
  Sender: FDA-Public Use
  Company Number: PHHY2011JP111289

PATIENT
  Age: 74 Year
  Sex: Male

DRUGS (1)
  1. RIVASTIGMINE [Suspect]
     Indication: DEMENTIA ALZHEIMER'S TYPE
     Dosage: 4.5 MG/24 HOURS
     Route: 062
     Dates: start: 20110914

REACTIONS (14)
  - DEHYDRATION [None]
  - BLOOD PRESSURE DECREASED [None]
  - ASPARTATE AMINOTRANSFERASE INCREASED [None]
  - MELAENA [None]
  - ACUTE PRERENAL FAILURE [None]
  - OEDEMA MUCOSAL [None]
  - FAECES DISCOLOURED [None]
  - ALTERED STATE OF CONSCIOUSNESS [None]
  - ALANINE AMINOTRANSFERASE INCREASED [None]
  - GASTROINTESTINAL HAEMORRHAGE [None]
  - ANAEMIA [None]
  - SHOCK [None]
  - HAEMATOCHEZIA [None]
  - ECCHYMOSIS [None]
